FAERS Safety Report 12968957 (Version 1)
Quarter: 2016Q4

REPORT INFORMATION
  Report Type: Spontaneous
  Country: US (occurrence: US)
  Receive Date: 20161123
  Receipt Date: 20161123
  Transmission Date: 20170207
  Serious: No
  Sender: FDA-Public Use
  Company Number: US-BAYER-2016-222861

PATIENT
  Age: 47 Year
  Sex: Female

DRUGS (1)
  1. CLIMARA PRO [Suspect]
     Active Substance: ESTRADIOL\LEVONORGESTREL
     Indication: HOT FLUSH
     Dosage: 1 DF, OW
     Route: 062
     Dates: start: 201601

REACTIONS (7)
  - Menorrhagia [None]
  - Drug ineffective [None]
  - Discomfort [Not Recovered/Not Resolved]
  - Amenorrhoea [None]
  - Product physical issue [None]
  - Product use issue [None]
  - Hot flush [Not Recovered/Not Resolved]

NARRATIVE: CASE EVENT DATE: 201608
